FAERS Safety Report 5082529-9 (Version None)
Quarter: 2006Q3

REPORT INFORMATION
  Report Type: 
  Country: None (occurrence: None)
  Receive Date: 20060817
  Receipt Date: 20050914
  Transmission Date: 20061208
  Serious: Yes (Hospitalization)
  Sender: FDA-Public Use
  Company Number: US-ROCHE-417954

PATIENT
  Age: 16 Year
  Sex: Female
  Weight: 120.2 kg

DRUGS (16)
  1. ACCUTANE [Suspect]
     Route: 048
     Dates: start: 19990315, end: 19990815
  2. ORTHO TRI-CYCLEN [Concomitant]
  3. NORTRIPTYLINE HCL [Concomitant]
  4. TOPAMAX [Concomitant]
  5. DIAMOX [Concomitant]
  6. AMITRIPTYLINE HCL [Concomitant]
  7. DOXYCYCLINE [Concomitant]
     Indication: ACNE
  8. TETRACYCLINE [Concomitant]
     Indication: ACNE
  9. MINOCYCLINE HCL [Concomitant]
     Indication: ACNE
  10. PERCOCET [Concomitant]
     Indication: PAIN
  11. MORPHINE [Concomitant]
     Indication: PAIN
  12. PREDNISONE [Concomitant]
     Indication: INFLAMMATION
  13. ONDANSETRON HCL [Concomitant]
     Indication: NAUSEA
  14. MOTRIN [Concomitant]
     Dosage: TAKEN RARELY.
  15. 1 CONCOMITANT DRUG [Concomitant]
     Indication: PAIN
     Dosage: DRUG REPORTED AS FITONAL.
  16. DESOGEN [Concomitant]
     Route: 048

REACTIONS (35)
  - ABDOMINAL PAIN [None]
  - BENIGN INTRACRANIAL HYPERTENSION [None]
  - BILIARY DILATATION [None]
  - BRONCHOSPASM [None]
  - CAESAREAN SECTION [None]
  - CHAPPED LIPS [None]
  - CHOLECYSTITIS [None]
  - CHOLELITHIASIS [None]
  - DIZZINESS [None]
  - DRY SKIN [None]
  - EPISTAXIS [None]
  - HEADACHE [None]
  - HEPATIC STEATOSIS [None]
  - HYPOAESTHESIA [None]
  - HYPOVENTILATION [None]
  - INFECTIOUS MONONUCLEOSIS [None]
  - INTRACRANIAL HYPOTENSION [None]
  - MENORRHAGIA [None]
  - MIGRAINE [None]
  - MUSCLE SPASMS [None]
  - MUSCULOSKELETAL PAIN [None]
  - OBESITY [None]
  - PAIN [None]
  - PAPILLOEDEMA [None]
  - PARAESTHESIA [None]
  - PICKWICKIAN SYNDROME [None]
  - POLYTRAUMATISM [None]
  - PREGNANCY [None]
  - PSYCHOTIC DISORDER [None]
  - SHUNT MALFUNCTION [None]
  - SOMNOLENCE [None]
  - SPLENOMEGALY [None]
  - UPPER AIRWAY RESISTANCE SYNDROME [None]
  - VAGINAL HAEMORRHAGE [None]
  - VISION BLURRED [None]
